FAERS Safety Report 24814963 (Version 1)
Quarter: 2025Q1

REPORT INFORMATION
  Report Type: Spontaneous
  Country: US (occurrence: US)
  Receive Date: 20250107
  Receipt Date: 20250107
  Transmission Date: 20250409
  Serious: No
  Sender: TARO
  Company Number: US-TARO PHARMACEUTICALS USA INC.-2024TAR01938

PATIENT

DRUGS (1)
  1. CLOBETASOL PROPIONATE [Interacting]
     Active Substance: CLOBETASOL PROPIONATE
     Indication: Nail dystrophy
     Route: 061

REACTIONS (2)
  - Genital lesion [Not Recovered/Not Resolved]
  - Accidental exposure to product [Unknown]

NARRATIVE: CASE EVENT DATE: 20241006
